FAERS Safety Report 18370841 (Version 3)
Quarter: 2021Q3

REPORT INFORMATION
  Report Type: Spontaneous
  Country: US (occurrence: US)
  Receive Date: 20201012
  Receipt Date: 20210816
  Transmission Date: 20211014
  Serious: No
  Sender: FDA-Public Use
  Company Number: US-SA-2020SA273852

PATIENT
  Age: 52 Year
  Sex: Female

DRUGS (1)
  1. DUPIXENT [Suspect]
     Active Substance: DUPILUMAB
     Indication: DERMATITIS ATOPIC
     Dosage: 300 MG; OTHER
     Route: 058
     Dates: start: 20200701

REACTIONS (2)
  - Dermatitis atopic [Unknown]
  - Skin weeping [Unknown]

NARRATIVE: CASE EVENT DATE: 202007
